FAERS Safety Report 7022411-0 (Version None)
Quarter: 2010Q3

REPORT INFORMATION
  Report Type: 
  Country: None (occurrence: None)
  Receive Date: 20100930
  Receipt Date: 20100927
  Transmission Date: 20110219
  Serious: Yes (Death, Hospitalization)
  Sender: FDA-Public Use
  Company Number: BR-ROCHE-715483

PATIENT
  Sex: Male

DRUGS (11)
  1. MYCOPHENOLATE MOFETIL [Suspect]
     Route: 065
     Dates: start: 20050925, end: 20100706
  2. CYCLOSPORINE [Suspect]
     Route: 048
     Dates: start: 20051001
  3. CYCLOSPORINE [Suspect]
     Route: 048
     Dates: start: 20091204, end: 20100713
  4. CYCLOSPORINE [Suspect]
     Route: 048
     Dates: start: 20100714, end: 20100714
  5. CYCLOSPORINE [Suspect]
     Route: 048
     Dates: start: 20100715, end: 20100715
  6. PREDNISONE [Suspect]
     Route: 065
     Dates: start: 20050927
  7. PREDNISONE [Suspect]
     Route: 065
     Dates: start: 20100706, end: 20100816
  8. CYCLOPHOSPHAMIDE [Suspect]
     Indication: CHEMOTHERAPY
     Route: 042
     Dates: start: 20100719
  9. DOXORUBICIN HCL [Suspect]
     Indication: CHEMOTHERAPY
     Route: 042
     Dates: start: 20100719
  10. DEXAMETHASONE [Suspect]
     Indication: CHEMOTHERAPY
     Route: 042
     Dates: start: 20100719
  11. VINCRISTINE [Suspect]
     Indication: CHEMOTHERAPY
     Route: 042
     Dates: start: 20100719

REACTIONS (4)
  - B-CELL LYMPHOMA [None]
  - FEBRILE NEUTROPENIA [None]
  - SEPTIC SHOCK [None]
  - URINARY TRACT INFECTION [None]
